FAERS Safety Report 5159346-4 (Version None)
Quarter: 2006Q4

REPORT INFORMATION
  Report Type: 
  Country: None (occurrence: None)
  Receive Date: 20061120
  Receipt Date: 20061107
  Transmission Date: 20070319
  Serious: Yes (Other)
  Sender: FDA-Public Use
  Company Number: 230252

PATIENT
  Age: 53 Year
  Sex: Female
  Weight: 68 kg

DRUGS (5)
  1. MABTHERA(RITUXIMAB) CONC FOR SOLUTION FOR INFUSION [Suspect]
     Indication: POLYARTHRITIS
     Dosage: 1 G, Q2W, INTRAVENOUS
     Route: 042
  2. RIFATERA(ISONIAZID, PYRAZINAMIDE, RIFAMPIN) [Suspect]
     Indication: TUBERCULOSIS
     Dosage: 5 TABLET, ORAL
     Route: 048
  3. PREDNISONE [Suspect]
     Indication: RHEUMATOID ARTHRITIS
     Dosage: 40 MG, ORAL
     Route: 048
  4. MORPHINE SULFATE [Suspect]
     Indication: RHEUMATOID ARTHRITIS
     Dosage: 30 MG, ORAL
     Route: 048
  5. SOLU-MEDROL [Concomitant]

REACTIONS (5)
  - AGGRESSION [None]
  - DELIRIUM [None]
  - DRUG INTERACTION [None]
  - PARANOIA [None]
  - PSYCHOMOTOR HYPERACTIVITY [None]
